FAERS Safety Report 12936501 (Version 1)
Quarter: 2016Q4

REPORT INFORMATION
  Report Type: Spontaneous
  Country: FR (occurrence: FR)
  Receive Date: 20161114
  Receipt Date: 20161114
  Transmission Date: 20170207
  Serious: Yes (Disabling)
  Sender: FDA-Public Use
  Company Number: FR-SA-2016SA203100

PATIENT
  Age: 70 Year
  Sex: Male

DRUGS (1)
  1. BCG FOR IMMUNOTHERAPY [Suspect]
     Active Substance: BACILLUS CALMETTE-GUERIN ANTIGEN, UNSPECIFIED SUBSTRAIN
     Indication: BLADDER CANCER
     Route: 065
     Dates: start: 2013, end: 2013

REACTIONS (6)
  - Mass [Unknown]
  - Bone tuberculosis [Unknown]
  - Walking disability [Unknown]
  - Osteolysis [Unknown]
  - Pain in extremity [Unknown]
  - Bone deformity [Unknown]

NARRATIVE: CASE EVENT DATE: 201509
